FAERS Safety Report 5887783-9 (Version None)
Quarter: 2008Q3

REPORT INFORMATION
  Report Type: 
  Country: None (occurrence: None)
  Receive Date: 20080916
  Receipt Date: 20080905
  Transmission Date: 20090109
  Serious: Yes (Death)
  Sender: FDA-Public Use
  Company Number: GXKR2008US08070

PATIENT
  Age: 61 Year
  Sex: Male

DRUGS (7)
  1. CYCLOSPORINE [Suspect]
     Indication: IMMUNOSUPPRESSION
  2. MYCOPHENOLATE MOFETIL [Suspect]
     Indication: IMMUNOSUPPRESSION
  3. PREDNISONE TAB [Suspect]
     Indication: IMMUNOSUPPRESSION
  4. METHYLPREDNISOLONE [Suspect]
     Indication: TRANSPLANT REJECTION
  5. OKT 3 (MUROMONAB-CD3) [Suspect]
     Indication: IMMUNOSUPPRESSION
  6. CYTOGAM (IMMUNOGLOBULIN CYTOMEGALOVIRUS) UNKNOWN [Concomitant]
  7. GANCICLOVIR [Concomitant]

REACTIONS (11)
  - ARTERITIS CORONARY [None]
  - CARDIOGENIC SHOCK [None]
  - COMPLICATIONS OF TRANSPLANTED HEART [None]
  - CONDITION AGGRAVATED [None]
  - EPSTEIN-BARR VIRUS ASSOCIATED LYMPHOPROLIFERATIVE DISORDER [None]
  - HAEMODYNAMIC INSTABILITY [None]
  - LEFT VENTRICULAR DYSFUNCTION [None]
  - MYOCARDIAL ISCHAEMIA [None]
  - RENAL FAILURE ACUTE [None]
  - TRANSPLANT FAILURE [None]
  - VASCULITIS [None]
